FAERS Safety Report 10099992 (Version 1)
Quarter: 2014Q2

REPORT INFORMATION
  Report Type: Spontaneous
  Country: HR (occurrence: HR)
  Receive Date: 20140423
  Receipt Date: 20140423
  Transmission Date: 20141212
  Serious: Yes (Other)
  Sender: FDA-Public Use
  Company Number: HR-TEVA-477101ISR

PATIENT
  Age: 84 Year
  Sex: Male
  Weight: 85 kg

DRUGS (7)
  1. SUMAMED [Suspect]
     Indication: BRONCHITIS
     Route: 048
     Dates: start: 20140213, end: 20140214
  2. CARDIOPIRIN [Concomitant]
     Indication: ACUTE MYOCARDIAL INFARCTION
     Route: 048
  3. CARVELOL [Concomitant]
     Route: 048
  4. FURSEMID [Concomitant]
     Indication: HYPERTENSION
     Route: 048
  5. IRUMED [Concomitant]
     Route: 048
  6. LIPEX [Concomitant]
  7. NITROLINGUAL [Concomitant]
     Route: 048

REACTIONS (3)
  - Chest pain [Recovered/Resolved]
  - Palpitations [Recovered/Resolved]
  - Cardiac flutter [Recovered/Resolved]
